FAERS Safety Report 5794537-0 (Version None)
Quarter: 2008Q2

REPORT INFORMATION
  Report Type: 
  Country: None (occurrence: None)
  Receive Date: 20080626
  Receipt Date: 20080613
  Transmission Date: 20081010
  Serious: Yes (Hospitalization, Other)
  Sender: FDA-Public Use
  Company Number: THQ2008A00710

PATIENT
  Age: 68 Year
  Sex: Female

DRUGS (1)
  1. PIOGLITAZONE HCL [Suspect]
     Indication: DIABETES MELLITUS
     Dosage: 15 MG (15 MG, 1 IN 24 HR); PER ORAL
     Route: 048
     Dates: start: 20080101

REACTIONS (5)
  - BLOOD GLUCOSE FLUCTUATION [None]
  - BLOOD PRESSURE INADEQUATELY CONTROLLED [None]
  - HEPATIC CIRRHOSIS [None]
  - SWELLING [None]
  - UPPER LIMB FRACTURE [None]
